FAERS Safety Report 6314921-6 (Version None)
Quarter: 2009Q3

REPORT INFORMATION
  Report Type: 
  Country: None (occurrence: None)
  Receive Date: 20090819
  Receipt Date: 20090811
  Transmission Date: 20100115
  Serious: Yes (Hospitalization, Other)
  Sender: FDA-Public Use
  Company Number: A0799170A

PATIENT
  Age: 55 Year
  Sex: Female
  Weight: 66.8 kg

DRUGS (2)
  1. CEFTIN [Suspect]
     Dosage: 250MG TWICE PER DAY
     Route: 048
     Dates: start: 20090305, end: 20090314
  2. AVONEX [Concomitant]
     Indication: MULTIPLE SCLEROSIS
     Dosage: 30MCG WEEKLY
     Route: 030
     Dates: start: 20030701

REACTIONS (9)
  - ASTHENIA [None]
  - CHILLS [None]
  - CLOSTRIDIUM DIFFICILE COLITIS [None]
  - DECREASED APPETITE [None]
  - DEHYDRATION [None]
  - DIARRHOEA [None]
  - NAUSEA [None]
  - PSEUDOMEMBRANOUS COLITIS [None]
  - VOMITING [None]
